FAERS Safety Report 15812082 (Version 1)
Quarter: 2018Q4

REPORT INFORMATION
  Report Type: Spontaneous
  Country: US (occurrence: US)
  Receive Date: 20181214
  Receipt Date: 20181214
  Transmission Date: 20190205
  Serious: No
  Sender: FDA-Public Use
  Company Number: None

PATIENT
  Sex: Female

DRUGS (1)
  1. ENBREL [Suspect]
     Active Substance: ETANERCEPT
     Indication: PRODUCT USED FOR UNKNOWN INDICATION
     Route: 058
     Dates: start: 20181004, end: 20181115

REACTIONS (6)
  - Cough [None]
  - Pyrexia [None]
  - Urticaria [None]
  - Rash [None]
  - Diarrhoea [None]
  - Respiration abnormal [None]
